FAERS Safety Report 9878419 (Version 2)
Quarter: 2014Q1

REPORT INFORMATION
  Report Type: Spontaneous
  Country: US (occurrence: US)
  Receive Date: 20140206
  Receipt Date: 20140206
  Transmission Date: 20141002
  Serious: No
  Sender: FDA-Public Use
  Company Number: US-ALLERGAN-1310842US

PATIENT
  Age: 61 Year
  Sex: Female

DRUGS (5)
  1. BOTOX [Suspect]
     Indication: TORTICOLLIS
     Dosage: 400 UNITS, SINGLE
     Route: 030
     Dates: start: 20130710, end: 20130710
  2. BOTOX [Suspect]
     Dosage: UNK
  3. VALIUM [Concomitant]
     Indication: TORTICOLLIS
     Dosage: UNK
  4. DEMEROL [Concomitant]
     Indication: TORTICOLLIS
     Dosage: UNK
  5. ESTROGEN NOS [Concomitant]
     Indication: HORMONE REPLACEMENT THERAPY
     Dosage: UNK

REACTIONS (3)
  - Incorrect dose administered [Unknown]
  - Dysphagia [Recovered/Resolved]
  - Drug ineffective [Unknown]
